FAERS Safety Report 5312174-9 (Version None)
Quarter: 2007Q2

REPORT INFORMATION
  Report Type: 
  Country: None (occurrence: None)
  Receive Date: 20070430
  Receipt Date: 20060822
  Transmission Date: 20071010
  Serious: No
  Sender: FDA-Public Use
  Company Number: 2006UW16630

PATIENT
  Age: 38 Year
  Sex: Female
  Weight: 54.4 kg

DRUGS (5)
  1. NEXIUM [Suspect]
     Indication: GASTROOESOPHAGEAL REFLUX DISEASE
     Route: 048
     Dates: start: 20060801, end: 20060801
  2. NEXIUM [Suspect]
     Indication: DYSPEPSIA
     Route: 048
     Dates: start: 20060801, end: 20060801
  3. NEXIUM [Suspect]
     Route: 048
     Dates: start: 20060801, end: 20060801
  4. NEXIUM [Suspect]
     Route: 048
     Dates: start: 20060801, end: 20060801
  5. REMERON [Concomitant]

REACTIONS (5)
  - DISTURBANCE IN ATTENTION [None]
  - DIZZINESS [None]
  - DRUG INEFFECTIVE [None]
  - FEELING ABNORMAL [None]
  - FRUSTRATION [None]
